FAERS Safety Report 17131248 (Version 1)
Quarter: 2019Q4

REPORT INFORMATION
  Report Type: Report from Study
  Country: AT (occurrence: AT)
  Receive Date: 20191209
  Receipt Date: 20191209
  Transmission Date: 20200122
  Serious: Yes (Hospitalization, Other)
  Sender: FDA-Public Use
  Company Number: AT-ELI_LILLY_AND_COMPANY-AT201801000103

PATIENT
  Age: 74 Year
  Sex: Male
  Weight: 86 kg

DRUGS (46)
  1. GEMCITABINE HYDROCHLORIDE. [Suspect]
     Active Substance: GEMCITABINE HYDROCHLORIDE
     Dosage: 1000 MG/M2, UNKNOWN
     Route: 065
     Dates: start: 20170921
  2. GEMCITABINE HYDROCHLORIDE. [Suspect]
     Active Substance: GEMCITABINE HYDROCHLORIDE
     Dosage: 1000 MG/M2, UNKNOWN
     Route: 065
     Dates: start: 20171109
  3. ABRAXANE [Suspect]
     Active Substance: PACLITAXEL
     Indication: PANCREATIC CARCINOMA
     Dosage: 100 MG/M2, UNKNOWN
     Route: 041
     Dates: start: 2017
  4. ABRAXANE [Suspect]
     Active Substance: PACLITAXEL
     Dosage: 125 MG/M2, UNKNOWN
     Route: 041
     Dates: start: 20170817
  5. ABRAXANE [Suspect]
     Active Substance: PACLITAXEL
     Dosage: 100 MG/M2, UNKNOWN
     Route: 041
     Dates: start: 20170921
  6. ZOFRAN [Concomitant]
     Active Substance: ONDANSETRON HYDROCHLORIDE
     Indication: NAUSEA
     Dosage: 16 MG, DAILY
     Route: 048
     Dates: start: 20170705
  7. PANTOPRAZOLE [Concomitant]
     Active Substance: PANTOPRAZOLE
     Indication: PROPHYLAXIS
     Dosage: 20 MG, DAILY
     Route: 048
  8. LEUCOVORIN [FOLINIC ACID] [Concomitant]
     Active Substance: LEUCOVORIN
     Indication: PANCREATIC CARCINOMA
     Dosage: UNK
     Dates: start: 201909
  9. ABRAXANE [Suspect]
     Active Substance: PACLITAXEL
     Dosage: 75 MG/M2, UNKNOWN
     Route: 041
     Dates: start: 20181206, end: 20190613
  10. ABRAXANE [Suspect]
     Active Substance: PACLITAXEL
     Dosage: 75 MG/M2, UNKNOWN
     Route: 041
     Dates: start: 20171211
  11. MOLAXOLE [Concomitant]
     Active Substance: POLYETHYLENE GLYCOL 3350\POTASSIUM CHLORIDE\SODIUM BICARBONATE\SODIUM CHLORIDE
     Indication: CONSTIPATION
     Dosage: UNK
     Route: 048
     Dates: start: 20170705
  12. CLAVAMOX [AMOXICILLIN SODIUM;CLAVULANATE POTA [Concomitant]
     Indication: FEBRILE INFECTION
     Dosage: UNK
     Route: 048
     Dates: start: 201708, end: 201708
  13. TAZONAM [Concomitant]
     Active Substance: TAZOBACTAM
     Indication: FEBRILE INFECTION
     Dosage: UNK
     Route: 041
     Dates: start: 20170804, end: 20170809
  14. IRINOTECAN [Concomitant]
     Active Substance: IRINOTECAN
     Indication: PANCREATIC CARCINOMA
     Dosage: UNK
     Dates: start: 201909
  15. GEMCITABINE HYDROCHLORIDE. [Suspect]
     Active Substance: GEMCITABINE HYDROCHLORIDE
     Dosage: 1000 MG/M2, UNKNOWN
     Route: 065
     Dates: start: 20180208
  16. BISOPROLOL [Concomitant]
     Active Substance: BISOPROLOL
     Indication: HYPERTENSION
     Dosage: 5 MG, DAILY
     Route: 048
  17. EXFORGE [Concomitant]
     Active Substance: AMLODIPINE BESYLATE\VALSARTAN
     Indication: HYPERTENSION
     Dosage: 10/160 MG, DAILY
     Route: 048
  18. NEUROBION N [CYANOCOBALAMIN;PYRIDOXINE HYDROC [Concomitant]
     Indication: NEUROPATHY PERIPHERAL
     Dosage: UNK
     Route: 048
     Dates: start: 20170907
  19. 5-FLUOROURACIL [FLUOROURACIL] [Concomitant]
     Active Substance: FLUOROURACIL
     Indication: PANCREATIC CARCINOMA
     Dosage: UNK
     Dates: start: 201909
  20. ABRAXANE [Suspect]
     Active Substance: PACLITAXEL
     Dosage: 75 MG/M2, UNKNOWN
     Route: 041
     Dates: start: 20180118
  21. MAGNOSOLV [Concomitant]
     Indication: MAGNESIUM DEFICIENCY
     Dosage: UNK, DAILY
     Route: 048
     Dates: start: 20170713, end: 201707
  22. METFORMIN [Concomitant]
     Active Substance: METFORMIN HYDROCHLORIDE
     Indication: TYPE 2 DIABETES MELLITUS
     Dosage: 850 MG, UNK
     Route: 048
  23. MOXONIBENE [Concomitant]
     Active Substance: MOXONIDINE
     Indication: HYPERTENSION
     Dosage: 0.4 MG, UNK
     Route: 065
  24. GEMCITABINE HYDROCHLORIDE. [Suspect]
     Active Substance: GEMCITABINE HYDROCHLORIDE
     Dosage: 1000 MG/M2, UNKNOWN
     Route: 065
     Dates: start: 20180118
  25. GEMCITABINE HYDROCHLORIDE. [Suspect]
     Active Substance: GEMCITABINE HYDROCHLORIDE
     Dosage: 1000 MG/M2, UNKNOWN
     Route: 065
     Dates: start: 20180405
  26. ABRAXANE [Suspect]
     Active Substance: PACLITAXEL
     Dosage: 75 MG/M2, UNKNOWN
     Route: 041
     Dates: start: 20181109
  27. PASPERTIN [METOCLOPRAMIDE HYDROCHLORIDE] [Concomitant]
     Active Substance: METOCLOPRAMIDE HYDROCHLORIDE
     Indication: NAUSEA
     Dosage: 10 MG, UNK
     Route: 048
     Dates: start: 20170705
  28. AMLODIPINE [Concomitant]
     Active Substance: AMLODIPINE BESYLATE
     Indication: HYPERTENSION
     Dosage: 10 MG, DAILY
     Dates: start: 20120430
  29. ACETYLSALICYLIC ACID [Concomitant]
     Active Substance: ASPIRIN
     Indication: PROPHYLAXIS
     Dosage: 100 MG, DAILY
     Route: 065
  30. GEMCITABINE HYDROCHLORIDE. [Suspect]
     Active Substance: GEMCITABINE HYDROCHLORIDE
     Indication: PANCREATIC CARCINOMA
     Dosage: 1000 MG/M2, UNKNOWN
     Route: 065
     Dates: start: 20170705
  31. GEMCITABINE HYDROCHLORIDE. [Suspect]
     Active Substance: GEMCITABINE HYDROCHLORIDE
     Dosage: 1000 MG/M2, UNKNOWN
     Route: 065
     Dates: start: 20171211
  32. ABRAXANE [Suspect]
     Active Substance: PACLITAXEL
     Dosage: 100 MG/M2 (ALSO REPORTED AS; 75 MG/M2)
     Route: 041
     Dates: start: 20171211
  33. ABRAXANE [Suspect]
     Active Substance: PACLITAXEL
     Dosage: UNK, UNKNOWN
     Route: 041
     Dates: start: 20190910
  34. TAMSU [Concomitant]
     Active Substance: TAMSULOSIN HYDROCHLORIDE
     Indication: BENIGN PROSTATIC HYPERPLASIA
     Dosage: 0.4 MG, DAILY
     Route: 048
     Dates: start: 20171127
  35. ABRAXANE [Suspect]
     Active Substance: PACLITAXEL
     Dosage: 100 MG/M2, UNKNOWN
     Route: 041
     Dates: start: 20171109
  36. ABRAXANE [Suspect]
     Active Substance: PACLITAXEL
     Dosage: 93 MG/M2 (ALSO REPORTED AS; 75 MG/M2)
     Route: 041
     Dates: start: 20180405
  37. MAGNESIUM GLUCONICUM [Concomitant]
     Indication: MAGNESIUM DEFICIENCY
     Dosage: UNK
     Route: 041
     Dates: start: 20170713, end: 20170713
  38. FRAGMIN [Concomitant]
     Active Substance: DALTEPARIN SODIUM
     Indication: PROPHYLAXIS
     Dosage: 7500 IU, UNK
     Route: 058
  39. TRAMABENE [Concomitant]
     Active Substance: TRAMADOL
     Indication: PAIN
     Dosage: 200 MG, DAILY
     Route: 048
     Dates: start: 20170705
  40. GEMCITABINE HYDROCHLORIDE. [Suspect]
     Active Substance: GEMCITABINE HYDROCHLORIDE
     Dosage: 1000 MG/M2, UNKNOWN
     Route: 065
     Dates: start: 20170817
  41. GEMCITABINE HYDROCHLORIDE. [Suspect]
     Active Substance: GEMCITABINE HYDROCHLORIDE
     Dosage: 1000 MG/M2, UNKNOWN
     Route: 065
     Dates: start: 20180308
  42. ABRAXANE [Suspect]
     Active Substance: PACLITAXEL
     Dosage: 125 MG/M2, UNKNOWN
     Route: 041
     Dates: start: 20170705
  43. ABRAXANE [Suspect]
     Active Substance: PACLITAXEL
     Dosage: 75 MG/M2, UNKNOWN
     Route: 041
     Dates: start: 20180208
  44. ABRAXANE [Suspect]
     Active Substance: PACLITAXEL
     Dosage: 60 MG/M2, UNKNOWN
     Route: 041
     Dates: start: 20180308
  45. SIMVASTATIN. [Concomitant]
     Active Substance: SIMVASTATIN
     Indication: HYPERLIPIDAEMIA
     Dosage: 10 MG, DAILY
     Route: 048
  46. MAGNOSOLV [Concomitant]
     Dosage: SACHET
     Route: 048
     Dates: start: 20170713, end: 201707

REACTIONS (33)
  - Musculoskeletal pain [Not Recovered/Not Resolved]
  - Taste disorder [Recovered/Resolved]
  - Decreased appetite [Recovered/Resolved]
  - Dyspnoea exertional [Recovered/Resolved]
  - Taste disorder [Recovered/Resolved]
  - Taste disorder [Recovered/Resolved]
  - Neutropenia [Recovered/Resolved]
  - Venous thrombosis limb [Recovered/Resolved]
  - Blood creatinine increased [Recovered/Resolved]
  - Polyneuropathy [Not Recovered/Not Resolved]
  - Decreased appetite [Recovered/Resolved]
  - Arthralgia [Recovered/Resolved]
  - Catheter site swelling [Recovered/Resolved]
  - Back pain [Recovered/Resolved]
  - Rash pruritic [Recovered/Resolved]
  - Neutropenia [Recovered/Resolved]
  - Vertigo [Recovered/Resolved]
  - Nasopharyngitis [Recovered/Resolved]
  - Polyneuropathy [Not Recovered/Not Resolved]
  - Muscle spasms [Recovered/Resolved]
  - Myopathy [Not Recovered/Not Resolved]
  - Dysgeusia [Recovered/Resolved]
  - Vertigo [Recovered/Resolved]
  - Hyperkalaemia [Recovered/Resolved]
  - Febrile infection [Recovered/Resolved]
  - Syncope [Recovered/Resolved]
  - Vomiting [Recovered/Resolved]
  - Oedema peripheral [Recovered/Resolved]
  - Malignant neoplasm progression [Unknown]
  - Neck pain [Not Recovered/Not Resolved]
  - Influenza [Recovered/Resolved]
  - Neutropenia [Recovered/Resolved]
  - Haemolytic uraemic syndrome [Recovered/Resolved]

NARRATIVE: CASE EVENT DATE: 20170709
